FAERS Safety Report 19505246 (Version 1)
Quarter: 2021Q3

REPORT INFORMATION
  Report Type: Spontaneous
  Country: MY (occurrence: MY)
  Receive Date: 20210707
  Receipt Date: 20210707
  Transmission Date: 20211014
  Serious: Yes (Other)
  Sender: FDA-Public Use
  Company Number: MY-BAXTER-2021BAX018701

PATIENT
  Age: 22 Year
  Sex: Female

DRUGS (1)
  1. ENDOXAN INJ 1GM (50ML VIAL) [Suspect]
     Active Substance: CYCLOPHOSPHAMIDE
     Indication: CHEMOTHERAPY
     Dosage: 50 ML VIAL
     Route: 041

REACTIONS (7)
  - Choking sensation [Recovered/Resolved]
  - Headache [Recovered/Resolved]
  - Flushing [Recovered/Resolved]
  - Pruritus [Recovered/Resolved]
  - Oropharyngeal pain [Recovered/Resolved]
  - Dysphagia [Recovered/Resolved]
  - Periorbital oedema [Recovered/Resolved]
